FAERS Safety Report 9763127 (Version 1)
Quarter: 2013Q4

REPORT INFORMATION
  Report Type: Report from Study
  Country: US (occurrence: US)
  Receive Date: 20131216
  Receipt Date: 20131216
  Transmission Date: 20140711
  Serious: Yes (Hospitalization)
  Sender: FDA-Public Use
  Company Number: PHEH2013US025658

PATIENT
  Sex: Female

DRUGS (8)
  1. TOBI PODHALER [Suspect]
     Indication: CYSTIC FIBROSIS
     Dosage: 112 MG, BID
     Route: 055
  2. METOPROLOL [Concomitant]
     Dosage: UNK UKN, UNK
  3. LOSARTIN [Concomitant]
     Dosage: UNK UKN, UNK
  4. CAYSTON [Concomitant]
     Dosage: UNK UKN, UNK
  5. CEFDINIR [Concomitant]
     Dosage: UNK UKN, UNK
  6. CREON [Concomitant]
     Dosage: UNK UKN, UNK
  7. SALIN [Concomitant]
     Dosage: UNK UKN, UNK
  8. LEVALBUTEROL [Concomitant]
     Dosage: UNK UKN, UNK

REACTIONS (7)
  - Pneumonia [Unknown]
  - Balance disorder [Unknown]
  - Lip swelling [Unknown]
  - Supraventricular tachycardia [Unknown]
  - Cough [Unknown]
  - Dyspnoea [Unknown]
  - Deafness [Unknown]
